FAERS Safety Report 19075082 (Version 2)
Quarter: 2022Q1

REPORT INFORMATION
  Report Type: Spontaneous
  Country: US (occurrence: None)
  Receive Date: 20210330
  Receipt Date: 20220323
  Transmission Date: 20220423
  Serious: No
  Sender: FDA-Public Use
  Company Number: US-ROCHE-2751553

PATIENT
  Age: 85 Year
  Sex: Male
  Weight: 81.720 kg

DRUGS (12)
  1. ERIVEDGE [Suspect]
     Active Substance: VISMODEGIB
     Indication: Ear neoplasm malignant
     Dosage: ONGOING: NO
     Route: 048
     Dates: start: 20201225
  2. ALFUZOSIN [Concomitant]
     Active Substance: ALFUZOSIN
     Route: 048
     Dates: start: 2016
  3. ALLOPURINOL [Concomitant]
     Active Substance: ALLOPURINOL
     Route: 048
     Dates: start: 2016
  4. AMLODIPINE [Concomitant]
     Active Substance: AMLODIPINE BESYLATE
     Route: 048
  5. COLCRYS [Concomitant]
     Active Substance: COLCHICINE
     Indication: Prophylaxis
     Route: 048
     Dates: start: 2017
  6. FINASTERIDE [Concomitant]
     Active Substance: FINASTERIDE
     Indication: Prostatomegaly
     Route: 048
     Dates: start: 2017
  7. LISINOPRIL [Concomitant]
     Active Substance: LISINOPRIL
     Route: 048
     Dates: start: 2017
  8. PANTOPRAZOLE [Concomitant]
     Active Substance: PANTOPRAZOLE
     Indication: Gastric disorder
     Route: 048
     Dates: start: 2015
  9. PRAVASTATIN [Concomitant]
     Active Substance: PRAVASTATIN
     Indication: Liver injury
     Route: 048
  10. PENTOXIFYLLINE [Concomitant]
     Active Substance: PENTOXIFYLLINE
     Dosage: SOOTH THE STOMACH
     Route: 048
  11. SUCRALFATE [Concomitant]
     Active Substance: SUCRALFATE
     Route: 048
     Dates: start: 2017
  12. VITAMIN D3 [Concomitant]
     Active Substance: CHOLECALCIFEROL
     Route: 048
     Dates: start: 2017

REACTIONS (4)
  - Arthralgia [Recovered/Resolved]
  - Off label use [Unknown]
  - Ageusia [Unknown]
  - Dry mouth [Unknown]

NARRATIVE: CASE EVENT DATE: 20201225
